FAERS Safety Report 5008595-4 (Version None)
Quarter: 2006Q2

REPORT INFORMATION
  Report Type: 
  Country: None (occurrence: None)
  Receive Date: 20060523
  Receipt Date: 20060413
  Transmission Date: 20061013
  Serious: Yes (Hospitalization)
  Sender: FDA-Public Use
  Company Number: DE-ROCHE-444217

PATIENT
  Age: 64 Year
  Sex: Female
  Weight: 116 kg

DRUGS (4)
  1. BONIVA [Suspect]
     Indication: OSTEOPOROSIS
     Route: 048
     Dates: start: 20051112, end: 20060402
  2. CALCIMAGON-D3 [Concomitant]
     Indication: OSTEOPOROSIS
     Dosage: DOSAGE REGIMEN REPORTED AS 1
     Route: 048
     Dates: start: 20050123
  3. SORTIS [Concomitant]
     Indication: HYPERLIPIDAEMIA
     Dosage: DOSAGE REGIMEN REPORTED AS 1/4
     Route: 048
     Dates: start: 20060123
  4. EZETROL [Concomitant]
     Indication: HYPERLIPIDAEMIA
     Dosage: DOSAGE REGIMEN REPORTED AS 1
     Route: 048
     Dates: start: 20030508

REACTIONS (6)
  - ASTHENIA [None]
  - BLOOD PRESSURE INCREASED [None]
  - GAIT DISTURBANCE [None]
  - NAUSEA [None]
  - VERTIGO [None]
  - VOMITING [None]
